FAERS Safety Report 23610955 (Version 1)
Quarter: 2024Q1

REPORT INFORMATION
  Report Type: Report from Study
  Country: HN (occurrence: HN)
  Receive Date: 20240308
  Receipt Date: 20240308
  Transmission Date: 20240409
  Serious: Yes (Life-Threatening)
  Sender: FDA-Public Use
  Company Number: HN-002147023-NVSC2024HN050207

PATIENT
  Age: 67 Year
  Sex: Male

DRUGS (2)
  1. SACUBITRIL\VALSARTAN [Suspect]
     Active Substance: SACUBITRIL\VALSARTAN
     Indication: Cardiac failure
     Dosage: 50 MG, Q12H
     Route: 048
     Dates: start: 20220827, end: 202302
  2. SACUBITRIL\VALSARTAN [Suspect]
     Active Substance: SACUBITRIL\VALSARTAN
     Dosage: 100 MG, Q12H (AT 8 AM AND AT 8 PM)
     Route: 048
     Dates: start: 202303

REACTIONS (5)
  - Illness [Unknown]
  - Syncope [Not Recovered/Not Resolved]
  - Renal disorder [Recovering/Resolving]
  - Malaise [Unknown]
  - Limb injury [Recovered/Resolved]

NARRATIVE: CASE EVENT DATE: 20230201
